FAERS Safety Report 5294328-3 (Version None)
Quarter: 2007Q2

REPORT INFORMATION
  Report Type: 
  Country: None (occurrence: None)
  Receive Date: 20070406
  Receipt Date: 20070302
  Transmission Date: 20071010
  Serious: Yes (Other)
  Sender: FDA-Public Use
  Company Number: 2007SP002453

PATIENT
  Age: 50 Year
  Sex: Female

DRUGS (1)
  1. CLARITIN [Suspect]
     Indication: SINUS CONGESTION
     Dosage: ; PRN; PO
     Route: 048
     Dates: end: 20060401

REACTIONS (1)
  - ANGINA PECTORIS [None]
